FAERS Safety Report 13345324 (Version 1)
Quarter: 2017Q1

REPORT INFORMATION
  Report Type: Spontaneous
  Country: US (occurrence: US)
  Receive Date: 20170316
  Receipt Date: 20170316
  Transmission Date: 20170428
  Serious: Yes (Other)
  Sender: FDA-Public Use
  Company Number: None

PATIENT
  Age: 15 Year
  Sex: Female
  Weight: 74.25 kg

DRUGS (7)
  1. MELATONIN [Concomitant]
     Active Substance: MELATONIN
  2. ACETAMINOPHEN. [Concomitant]
     Active Substance: ACETAMINOPHEN
  3. DAILY ACNE CONTROL CLEANSER [Suspect]
     Active Substance: BENZOYL PEROXIDE
     Indication: PROPHYLAXIS
     Route: 061
     Dates: start: 20161201, end: 20170103
  4. INFLIXIMAB [Concomitant]
     Active Substance: INFLIXIMAB
  5. DAILY ACNE CONTROL CLEANSER [Suspect]
     Active Substance: BENZOYL PEROXIDE
     Indication: ACNE
     Route: 061
     Dates: start: 20161201, end: 20170103
  6. CALCIUM [Concomitant]
     Active Substance: CALCIUM
  7. VITAMIN D3 [Concomitant]
     Active Substance: CHOLECALCIFEROL

REACTIONS (3)
  - Urticaria [None]
  - Application site rash [None]
  - Pruritus [None]

NARRATIVE: CASE EVENT DATE: 20161201
